FAERS Safety Report 9947703 (Version 1)
Quarter: 2014Q1

REPORT INFORMATION
  Report Type: Report from Study
  Country: US (occurrence: US)
  Receive Date: 20140303
  Receipt Date: 20140303
  Transmission Date: 20141002
  Serious: No
  Sender: FDA-Public Use
  Company Number: US-ABBVIE-13P-163-1061115-00

PATIENT
  Age: 47 Year
  Sex: Female
  Weight: 105.33 kg

DRUGS (11)
  1. HUMIRA [Suspect]
     Indication: RHEUMATOID ARTHRITIS
     Dates: start: 201211, end: 20130301
  2. COUMADIN [Concomitant]
     Indication: COAGULOPATHY
  3. ATIVAN [Concomitant]
     Indication: ANXIETY
  4. PLAQUENIL [Concomitant]
     Indication: RHEUMATOID ARTHRITIS
  5. PROZAC [Concomitant]
     Indication: DEPRESSION
  6. HYDROCHLOROTHIAZIDE [Concomitant]
     Indication: FLUID REPLACEMENT
  7. METOPROLOL [Concomitant]
     Indication: HYPERTENSION
  8. LISINOPRIL [Concomitant]
     Indication: HYPERTENSION
  9. LORTAB [Concomitant]
     Indication: PAIN
  10. MOBIC [Concomitant]
     Indication: PRODUCT USED FOR UNKNOWN INDICATION
  11. FLEXERIL [Concomitant]
     Indication: PRODUCT USED FOR UNKNOWN INDICATION

REACTIONS (2)
  - Gastroenteritis viral [Recovered/Resolved]
  - Pyrexia [Recovered/Resolved]
